FAERS Safety Report 9993484 (Version 2)
Quarter: 2014Q1

REPORT INFORMATION
  Report Type: Spontaneous
  Country: JP (occurrence: JP)
  Receive Date: 20140310
  Receipt Date: 20140331
  Transmission Date: 20141002
  Serious: Yes (Other)
  Sender: FDA-Public Use
  Company Number: JP-TAKEDA-2014TJP002696

PATIENT
  Age: 67 Year
  Sex: Male

DRUGS (3)
  1. NESINA TABLETS 25MG [Suspect]
     Dosage: UNK
     Route: 048
  2. NORVASC [Concomitant]
     Dosage: UNK
     Route: 048
  3. PREMINENT [Concomitant]
     Dosage: UNK
     Route: 048

REACTIONS (1)
  - Hepatic function abnormal [Unknown]
